FAERS Safety Report 8740268 (Version 2)
Quarter: 2012Q4

REPORT INFORMATION
  Report Type: 
  Country: US (occurrence: US)
  Receive Date: 20120823
  Receipt Date: 20121009
  Transmission Date: 20130627
  Serious: No
  Sender: FDA-Public Use
  Company Number: US-009507513-1208USA003129

PATIENT
  Age: 70 None
  Sex: Male

DRUGS (1)
  1. TICE BCG LIVE [Suspect]
     Indication: BLADDER CANCER
     Dosage: UNK
     Dates: start: 20120719, end: 20120719

REACTIONS (3)
  - Cellulitis [Recovered/Resolved]
  - Accidental exposure to product [Unknown]
  - Skin discolouration [Unknown]
